FAERS Safety Report 12113751 (Version 2)
Quarter: 2016Q2

REPORT INFORMATION
  Report Type: Spontaneous
  Country: US (occurrence: US)
  Receive Date: 20160225
  Receipt Date: 20160412
  Transmission Date: 20160815
  Serious: Yes (Hospitalization)
  Sender: FDA-Public Use
  Company Number: US-BEH-2016059037

PATIENT
  Sex: Female
  Weight: 47 kg

DRUGS (21)
  1. INDOMETHACIN. [Concomitant]
     Active Substance: INDOMETHACIN
  2. MONTELUKAST SODIUM. [Concomitant]
     Active Substance: MONTELUKAST SODIUM
  3. ZOLPIDEM [Concomitant]
     Active Substance: ZOLPIDEM\ZOLPIDEM TARTRATE
  4. PULMICORT TURBUHALER [Concomitant]
     Active Substance: BUDESONIDE
  5. RANITIDINE. [Concomitant]
     Active Substance: RANITIDINE
  6. FLUTICASONE [Concomitant]
     Active Substance: FLUTICASONE\FLUTICASONE PROPIONATE
  7. LEVOXYL [Concomitant]
     Active Substance: LEVOTHYROXINE SODIUM
  8. PRILOSEC [Concomitant]
     Active Substance: OMEPRAZOLE MAGNESIUM
  9. HIZENTRA [Suspect]
     Active Substance: HUMAN IMMUNOGLOBULIN G
     Route: 058
  10. DIPHENHYDRAMINE. [Concomitant]
     Active Substance: DIPHENHYDRAMINE
  11. OCUVITE WITH LUTEIN [Concomitant]
  12. HIZENTRA [Suspect]
     Active Substance: HUMAN IMMUNOGLOBULIN G
     Indication: IMMUNODEFICIENCY COMMON VARIABLE
     Route: 058
  13. EPIPEN [Concomitant]
     Active Substance: EPINEPHRINE
  14. LOSARTAN. [Concomitant]
     Active Substance: LOSARTAN
  15. VITAMIN D [Concomitant]
     Active Substance: CHOLECALCIFEROL
  16. XYZAL [Concomitant]
     Active Substance: LEVOCETIRIZINE DIHYDROCHLORIDE
  17. ACETAMINOPHEN\HYDROCODONE BITARTRATE [Concomitant]
     Active Substance: ACETAMINOPHEN\HYDROCODONE BITARTRATE
  18. SPIRIVA [Concomitant]
     Active Substance: TIOTROPIUM BROMIDE MONOHYDRATE
  19. PREDNISONE. [Concomitant]
     Active Substance: PREDNISONE
  20. MULTIVITAMINS [Concomitant]
     Active Substance: VITAMINS
  21. IRON+VITAMIN C [Concomitant]

REACTIONS (2)
  - Arthralgia [Recovered/Resolved]
  - Knee arthroplasty [Recovered/Resolved]
